FAERS Safety Report 19491363 (Version 1)
Quarter: 2021Q3

REPORT INFORMATION
  Report Type: Spontaneous
  Country: US (occurrence: US)
  Receive Date: 20210705
  Receipt Date: 20210705
  Transmission Date: 20211014
  Serious: Yes (Other)
  Sender: FDA-Public Use
  Company Number: US-GLAXOSMITHKLINE-US2021GSK145100

PATIENT
  Sex: Male

DRUGS (4)
  1. ZANTAC [Suspect]
     Active Substance: RANITIDINE HYDROCHLORIDE
     Indication: MYASTHENIA GRAVIS
     Dosage: 150 MG, QD
     Route: 065
     Dates: start: 200001, end: 202012
  2. RANITIDINE. [Suspect]
     Active Substance: RANITIDINE
     Indication: MYASTHENIA GRAVIS
     Dosage: 150 MG, QD
     Route: 065
     Dates: start: 200001, end: 202012
  3. ZANTAC [Suspect]
     Active Substance: RANITIDINE HYDROCHLORIDE
     Indication: MYASTHENIA GRAVIS
     Dosage: 150 MG, QD
     Route: 065
     Dates: start: 200001, end: 202012
  4. RANITIDINE. [Suspect]
     Active Substance: RANITIDINE
     Indication: MYASTHENIA GRAVIS
     Dosage: 150 MG, QD
     Route: 065
     Dates: start: 200001, end: 202012

REACTIONS (1)
  - Prostate cancer [Unknown]
